FAERS Safety Report 5972005-0 (Version None)
Quarter: 2008Q4

REPORT INFORMATION
  Report Type: 
  Country: None (occurrence: None)
  Receive Date: 20081201
  Receipt Date: 20081030
  Transmission Date: 20090506
  Serious: No
  Sender: FDA-Public Use
  Company Number: US-BAYER-200837931NA

PATIENT
  Age: 15 Year
  Sex: Female
  Weight: 59 kg

DRUGS (1)
  1. OCELLA [Suspect]
     Indication: MENSTRUATION IRREGULAR
     Route: 048
     Dates: start: 20081005

REACTIONS (4)
  - ABDOMINAL PAIN [None]
  - ABNORMAL WITHDRAWAL BLEEDING [None]
  - DYSMENORRHOEA [None]
  - NO ADVERSE EVENT [None]
